FAERS Safety Report 20883999 (Version 9)
Quarter: 2025Q1

REPORT INFORMATION
  Report Type: Report from Study
  Country: CO (occurrence: CO)
  Receive Date: 20220527
  Receipt Date: 20250122
  Transmission Date: 20250409
  Serious: No
  Sender: TAKEDA
  Company Number: CO-TAKEDA-CO202017932

PATIENT
  Age: 33 Year
  Sex: Male
  Weight: 79 kg

DRUGS (8)
  1. ICATIBANT [Suspect]
     Active Substance: ICATIBANT ACETATE
     Indication: Hereditary angioedema
     Dosage: 30 MILLIGRAM, Q6HR
     Dates: start: 20190924
  2. ICATIBANT [Suspect]
     Active Substance: ICATIBANT ACETATE
     Dates: start: 20200713, end: 20200714
  3. ICATIBANT [Suspect]
     Active Substance: ICATIBANT ACETATE
  4. ICATIBANT [Suspect]
     Active Substance: ICATIBANT ACETATE
     Dosage: 1 DOSAGE FORM, Q8HR
     Dates: start: 20210924
  5. ICATIBANT [Suspect]
     Active Substance: ICATIBANT ACETATE
  6. TAKHZYRO [Suspect]
     Active Substance: LANADELUMAB-FLYO
     Indication: Hereditary angioedema
     Dosage: 300 MILLIGRAM, MONTHLY
     Dates: start: 20240411
  7. VALPROIC ACID [Concomitant]
     Active Substance: VALPROIC ACID
     Dosage: 750 MILLIGRAM, QD
  8. DANAZOL [Concomitant]
     Active Substance: DANAZOL
     Dosage: 200 MILLIGRAM, QD

REACTIONS (24)
  - Treatment noncompliance [Unknown]
  - Body height decreased [Unknown]
  - Nervousness [Unknown]
  - Road traffic accident [Recovering/Resolving]
  - Scratch [Recovering/Resolving]
  - Skin laceration [Recovering/Resolving]
  - Injury [Recovering/Resolving]
  - Abdominal pain upper [Recovered/Resolved]
  - Weight decreased [Unknown]
  - Anxiety [Not Recovered/Not Resolved]
  - Gait disturbance [Recovered/Resolved]
  - Arthropod bite [Recovered/Resolved]
  - Weight increased [Unknown]
  - Insomnia [Not Recovered/Not Resolved]
  - Fear of surgery [Not Recovered/Not Resolved]
  - Genital pain [Not Recovered/Not Resolved]
  - Influenza [Not Recovered/Not Resolved]
  - Cough [Not Recovered/Not Resolved]
  - Malaise [Not Recovered/Not Resolved]
  - Thermal burn [Recovering/Resolving]
  - Rash erythematous [Unknown]
  - Dermatitis allergic [Unknown]
  - Dizziness [Not Recovered/Not Resolved]
  - Headache [Not Recovered/Not Resolved]

NARRATIVE: CASE EVENT DATE: 20200529
